FAERS Safety Report 9942822 (Version 1)
Quarter: 2014Q1

REPORT INFORMATION
  Report Type: Spontaneous
  Country: US (occurrence: US)
  Receive Date: 20140303
  Receipt Date: 20140303
  Transmission Date: 20141002
  Serious: No
  Sender: FDA-Public Use
  Company Number: US-ABBVIE-13P-163-1045624-00

PATIENT
  Age: 58 Year
  Sex: Female
  Weight: 77.63 kg

DRUGS (3)
  1. HUMIRA [Suspect]
     Indication: PSORIASIS
     Dates: start: 2011
  2. TEGRETOL [Concomitant]
     Indication: PRODUCT USED FOR UNKNOWN INDICATION
  3. TOPICAL OINTMENT [Concomitant]
     Indication: PSORIASIS
     Route: 061

REACTIONS (2)
  - Injury associated with device [Recovered/Resolved]
  - Wrong technique in drug usage process [Recovered/Resolved]
